FAERS Safety Report 7808328-X (Version None)
Quarter: 2011Q4

REPORT INFORMATION
  Report Type: 
  Country: None (occurrence: None)
  Receive Date: 20111012
  Receipt Date: 20111004
  Transmission Date: 20120403
  Serious: No
  Sender: FDA-Public Use
  Company Number: US-BIOGENIDEC-2011BI038608

PATIENT
  Age: 56 Year
  Sex: Female

DRUGS (1)
  1. AVONEX [Suspect]
     Indication: MULTIPLE SCLEROSIS
     Route: 030
     Dates: start: 20110624

REACTIONS (5)
  - BREAST PAIN [None]
  - SKIN WARM [None]
  - PAIN OF SKIN [None]
  - PAIN IN EXTREMITY [None]
  - PAIN [None]
